FAERS Safety Report 4308904-5 (Version None)
Quarter: 2004Q1

REPORT INFORMATION
  Report Type: 
  Country: None (occurrence: None)
  Receive Date: 20040227
  Receipt Date: 20040216
  Transmission Date: 20041129
  Serious: Yes (Hospitalization, Disabling)
  Sender: FDA-Public Use
  Company Number: CA-JNJFOC-20031001124

PATIENT
  Age: 54 Year
  Sex: Male
  Weight: 70 kg

DRUGS (4)
  1. TOPAMAX (TOPIRAMATE) UNSPECIFIED [Suspect]
     Indication: AFFECTIVE DISORDER
     Dosage: 100 MG, IN 1 DAY, ORAL
     Route: 048
     Dates: end: 20030511
  2. METFORMIN HCL [Suspect]
     Indication: DIABETES MELLITUS NON-INSULIN-DEPENDENT
     Dosage: 2000 MG, IN 1 DAY, ORAL
     Route: 048
     Dates: start: 20020101, end: 20030423
  3. DIVALPROEX SODIUM [Suspect]
     Indication: AFFECTIVE DISORDER
     Dosage: 1500 MG, IN 1 DAY, ORAL
     Route: 048
     Dates: start: 20020101
  4. CLOZAPINE [Concomitant]

REACTIONS (9)
  - ANAEMIA [None]
  - CONVULSION [None]
  - DIABETES MELLITUS [None]
  - DRUG INTERACTION [None]
  - FALL [None]
  - HEAD INJURY [None]
  - INAPPROPRIATE ANTIDIURETIC HORMONE SECRETION [None]
  - NEPHROPATHY TOXIC [None]
  - RENAL FAILURE ACUTE [None]
